FAERS Safety Report 23090863 (Version 1)
Quarter: 2023Q4

REPORT INFORMATION
  Report Type: Spontaneous
  Country: US (occurrence: None)
  Receive Date: 20231020
  Receipt Date: 20231020
  Transmission Date: 20240110
  Serious: Yes (Other)
  Sender: FDA-Public Use
  Company Number: None

PATIENT
  Age: 67 Year
  Sex: Male

DRUGS (1)
  1. ALPROSTADIL\ATROPINE\PAPAVERINE\PHENTOLAMINE [Suspect]
     Active Substance: ALPROSTADIL\ATROPINE\PAPAVERINE\PHENTOLAMINE
     Indication: Erectile dysfunction
     Dosage: FREQUENCY : AS NEEDED;?
     Route: 017
     Dates: start: 20230907, end: 20231019

REACTIONS (5)
  - Injection site erythema [None]
  - Injection site swelling [None]
  - Injection site pain [None]
  - Injection site haemorrhage [None]
  - Wrong technique in product usage process [None]

NARRATIVE: CASE EVENT DATE: 20231019
